FAERS Safety Report 7329156-8 (Version None)
Quarter: 2011Q1

REPORT INFORMATION
  Report Type: 
  Country: None (occurrence: None)
  Receive Date: 20110303
  Receipt Date: 20110224
  Transmission Date: 20110831
  Serious: Yes (Death, Hospitalization)
  Sender: FDA-Public Use
  Company Number: A0752414A

PATIENT
  Age: 60 Year
  Sex: Male
  Weight: 84.1 kg

DRUGS (13)
  1. FLUOXETINE [Concomitant]
  2. AVANDIA [Suspect]
     Indication: DIABETES MELLITUS
     Dosage: 8MG TWICE PER DAY
     Route: 048
     Dates: start: 20001229, end: 20060805
  3. METOPROLOL SUCCINATE [Concomitant]
  4. PREDNISONE [Concomitant]
  5. DIGOXIN [Concomitant]
  6. PREVACID [Concomitant]
  7. PROTONIX [Concomitant]
  8. GLUCOPHAGE [Concomitant]
  9. ENALAPRIL MALEATE [Concomitant]
  10. METFORMIN [Concomitant]
  11. LIPITOR [Concomitant]
  12. GLUCOTROL XL [Concomitant]
  13. METAGLIP [Concomitant]

REACTIONS (1)
  - MYOCARDIAL INFARCTION [None]
